FAERS Safety Report 4584769-1 (Version None)
Quarter: 2005Q1

REPORT INFORMATION
  Report Type: 
  Country: None (occurrence: None)
  Receive Date: 20050217
  Receipt Date: 20050203
  Transmission Date: 20050727
  Serious: Yes (Hospitalization, Other)
  Sender: FDA-Public Use
  Company Number: ES-JNJFOC-20050201869

PATIENT
  Age: 50 Year
  Sex: Female

DRUGS (6)
  1. REMICADE [Suspect]
     Indication: ANKYLOSING SPONDYLITIS
     Route: 042
  2. METHOTREXATE [Concomitant]
     Indication: ANKYLOSING SPONDYLITIS
  3. CELECOXIB [Concomitant]
     Indication: ANKYLOSING SPONDYLITIS
  4. NSAIDS [Concomitant]
  5. OMEPRAZOLE [Concomitant]
  6. CALCIUM GLUCONATE [Concomitant]

REACTIONS (1)
  - OVARIAN CANCER [None]
